FAERS Safety Report 26045035 (Version 1)
Quarter: 2025Q4

REPORT INFORMATION
  Report Type: Report from Study
  Country: CA (occurrence: CA)
  Receive Date: 20251114
  Receipt Date: 20251114
  Transmission Date: 20260117
  Serious: Yes (Hospitalization)
  Sender: Alvotech
  Company Number: CA-JAMP PHARMA CORPORATION-2023-JAM-CA-00355

PATIENT
  Age: 65 Year
  Sex: Female

DRUGS (1)
  1. SIMLANDI [Suspect]
     Active Substance: ADALIMUMAB-RYVK
     Indication: Rheumatoid arthritis
     Dosage: 40 MILLIGRAM, EVERY 2 WEEKS
     Route: 058
     Dates: start: 20230304

REACTIONS (13)
  - Limb mass [Unknown]
  - Abdominal distension [Unknown]
  - Purpura [Unknown]
  - Rash erythematous [Not Recovered/Not Resolved]
  - Rash [Not Recovered/Not Resolved]
  - General physical health deterioration [Unknown]
  - Flatulence [Unknown]
  - Erythema [Unknown]
  - Pruritus [Unknown]
  - Swelling [Unknown]
  - Platelet count decreased [Unknown]
  - Rash pruritic [Not Recovered/Not Resolved]
  - Skin lesion [Not Recovered/Not Resolved]

NARRATIVE: CASE EVENT DATE: 20230304
